FAERS Safety Report 9408687 (Version 1)
Quarter: 2013Q3

REPORT INFORMATION
  Report Type: Spontaneous
  Country: NL (occurrence: NL)
  Receive Date: 20130718
  Receipt Date: 20130718
  Transmission Date: 20140515
  Serious: Yes (Hospitalization)
  Sender: FDA-Public Use
  Company Number: US-ASTRAZENECA-2013SE52765

PATIENT
  Age: 46 Year
  Sex: Female

DRUGS (11)
  1. HYDROCHLOROTHIAZIDE [Suspect]
  2. LISINOPRIL [Suspect]
  3. SAXAGLIPTIN [Suspect]
     Indication: TYPE 2 DIABETES MELLITUS
     Route: 048
     Dates: start: 20100826, end: 20110108
  4. SAXAGLIPTIN [Suspect]
     Indication: TYPE 2 DIABETES MELLITUS
     Route: 048
  5. METFORMINE [Suspect]
     Indication: TYPE 2 DIABETES MELLITUS
     Dates: end: 20110110
  6. METFORMINE [Suspect]
     Indication: TYPE 2 DIABETES MELLITUS
     Dates: start: 20110110
  7. LANTUS [Suspect]
     Indication: TYPE 2 DIABETES MELLITUS
  8. NOVORAPID [Suspect]
     Indication: TYPE 2 DIABETES MELLITUS
  9. SPIRONOLACTONE [Suspect]
  10. CELEBREX [Suspect]
  11. ASPIRIN [Concomitant]
     Dosage: 1DF= EQUAL TO OR LESS THAN 100MG; 15NOV2010, 1 DF
     Dates: start: 20100823

REACTIONS (3)
  - Renal failure acute [Recovered/Resolved]
  - Dehydration [Recovered/Resolved]
  - Enteritis [Recovered/Resolved]
